FAERS Safety Report 7609377-7 (Version None)
Quarter: 2011Q3

REPORT INFORMATION
  Report Type: 
  Country: None (occurrence: None)
  Receive Date: 20110714
  Receipt Date: 20110707
  Transmission Date: 20111222
  Serious: Yes (Disabling, Other)
  Sender: FDA-Public Use
  Company Number: PHHO2011BR10793

PATIENT
  Sex: Female
  Weight: 57.3 kg

DRUGS (9)
  1. PLACEBO [Suspect]
     Indication: BREAST CANCER METASTATIC
     Dosage: CODE NOT BROKEN
     Route: 048
     Dates: start: 20100712, end: 20110621
  2. FUROSEMIDE [Concomitant]
     Dosage: 80 MG, UNK
  3. BLINDED NO TREATMENT RECEIVED [Suspect]
     Indication: BREAST CANCER METASTATIC
     Dosage: CODE NOT BROKEN
     Route: 048
     Dates: start: 20100712, end: 20110621
  4. ESPIRONOLACTONA [Concomitant]
     Dosage: 5 MG, BID
  5. FUROSEMIDE [Concomitant]
     Dosage: 40 MG, UNK
  6. COMPARATOR TRASTUZUMAB [Suspect]
     Indication: BREAST CANCER METASTATIC
     Dosage: 110.2 MG, WK
     Dates: start: 20100712, end: 20110621
  7. ESPIRONOLACTONA [Concomitant]
     Dosage: 25 MG, BID
  8. AFINITOR [Suspect]
     Indication: BREAST CANCER METASTATIC
     Dosage: CODE NOT BROKEN
     Route: 048
     Dates: start: 20100712, end: 20110621
  9. PACLITAXEL [Suspect]
     Indication: BREAST CANCER METASTATIC
     Dosage: 124 MG, WK
     Dates: start: 20100712, end: 20110531

REACTIONS (1)
  - CONCOMITANT DISEASE PROGRESSION [None]
